FAERS Safety Report 13444439 (Version 1)
Quarter: 2017Q2

REPORT INFORMATION
  Report Type: Report from Study
  Country: DE (occurrence: DE)
  Receive Date: 20170414
  Receipt Date: 20170414
  Transmission Date: 20170830
  Serious: Yes (Life-Threatening, Hospitalization)
  Sender: FDA-Public Use
  Company Number: DE-TEVA-758218GER

PATIENT
  Age: 32 Year
  Sex: Female

DRUGS (3)
  1. MIRTAZAPINE. [Suspect]
     Active Substance: MIRTAZAPINE
     Dosage: 540MG
     Route: 065
  2. VENLAFAXINE [Suspect]
     Active Substance: VENLAFAXINE HYDROCHLORIDE
     Dosage: 9.75G DELAYED RELEASE FORMULATION; CONTROLLED RELEASE
     Route: 065
  3. VALPROAT [Suspect]
     Active Substance: VALPROATE SODIUM
     Dosage: 56G DELAYED RELEASE FORMULATION; CONTROLLED RELEASE
     Route: 065

REACTIONS (6)
  - Hyperammonaemia [Recovered/Resolved]
  - Thrombocytopenia [Unknown]
  - Overdose [Recovered/Resolved]
  - Hypotension [Recovered/Resolved]
  - Pneumonia aspiration [Recovered/Resolved]
  - Depressed level of consciousness [Recovered/Resolved]
